FAERS Safety Report 9904495 (Version 1)
Quarter: 2014Q1

REPORT INFORMATION
  Report Type: Spontaneous
  Country: US (occurrence: US)
  Receive Date: 20140218
  Receipt Date: 20140218
  Transmission Date: 20141002
  Serious: Yes (Other)
  Sender: FDA-Public Use
  Company Number: US-BAYER-2014-025089

PATIENT
  Age: 37 Year
  Sex: Female

DRUGS (1)
  1. YASMIN [Suspect]

REACTIONS (7)
  - Cerebrovascular accident [None]
  - Nervous system disorder [None]
  - Hypotonia [None]
  - General physical health deterioration [None]
  - Emotional distress [None]
  - Crying [None]
  - Musculoskeletal disorder [None]
